FAERS Safety Report 6901785-2 (Version None)
Quarter: 2010Q3

REPORT INFORMATION
  Report Type: 
  Country: None (occurrence: None)
  Receive Date: 20100802
  Receipt Date: 20100802
  Transmission Date: 20110219
  Serious: Yes (Hospitalization)
  Sender: FDA-Public Use
  Company Number: None

PATIENT
  Age: 7 Year
  Sex: Male
  Weight: 28.5766 kg

DRUGS (1)
  1. INTUNIV [Suspect]
     Indication: OPPOSITIONAL DEFIANT DISORDER
     Dosage: 2MG ONCE DAILY PO
     Route: 048
     Dates: start: 20100426, end: 20100715

REACTIONS (5)
  - HEART RATE DECREASED [None]
  - MEMORY IMPAIRMENT [None]
  - MUSCULAR WEAKNESS [None]
  - SYNCOPE [None]
  - UNRESPONSIVE TO STIMULI [None]
